FAERS Safety Report 15128578 (Version 2)
Quarter: 2018Q3

REPORT INFORMATION
  Report Type: Spontaneous
  Country: LT (occurrence: LT)
  Receive Date: 20180711
  Receipt Date: 20180713
  Transmission Date: 20181010
  Serious: Yes (Life-Threatening)
  Sender: FDA-Public Use
  Company Number: LT-ROCHE-2150447

PATIENT
  Sex: Female

DRUGS (2)
  1. PROSTAMOL [Concomitant]
  2. GAZYVARO [Suspect]
     Active Substance: OBINUTUZUMAB
     Indication: CHRONIC LYMPHOCYTIC LEUKAEMIA
     Dosage: 1ST CYCLE, SECOND DAY INFUSION 900MG
     Route: 042
     Dates: start: 201806, end: 201806

REACTIONS (1)
  - Pulmonary oedema [Recovered/Resolved]

NARRATIVE: CASE EVENT DATE: 201806
